FAERS Safety Report 4377839-4 (Version None)
Quarter: 2004Q2

REPORT INFORMATION
  Report Type: 
  Country: None (occurrence: None)
  Receive Date: 20040609
  Receipt Date: 20040527
  Transmission Date: 20050107
  Serious: Yes (Hospitalization)
  Sender: FDA-Public Use
  Company Number: 2004036197

PATIENT
  Age: 69 Year
  Sex: Male

DRUGS (2)
  1. DOXAZOSIN (DOXAZOSIN) [Suspect]
     Indication: BENIGN PROSTATIC HYPERPLASIA
     Dosage: 4 MG (4 MG, 1 IN 1 D), ORAL
     Route: 048
     Dates: start: 19970615
  2. CHLORTALIDONE (CHLORTALIDONE) [Concomitant]

REACTIONS (1)
  - PROSTATIC OPERATION [None]
